FAERS Safety Report 14656405 (Version 1)
Quarter: 2018Q1

REPORT INFORMATION
  Report Type: Spontaneous
  Country: US (occurrence: US)
  Receive Date: 20180317
  Receipt Date: 20180317
  Transmission Date: 20180509
  Serious: No
  Sender: FDA-Public Use
  Company Number: None

PATIENT
  Age: 63 Year
  Sex: Female

DRUGS (1)
  1. CAPECITABINE 500MG WEST-WARD PHARMACEUTICALS [Suspect]
     Active Substance: CAPECITABINE
     Indication: BREAST CANCER FEMALE
     Route: 048
     Dates: start: 20180116

REACTIONS (7)
  - Rash [None]
  - Product substitution issue [None]
  - Abdominal distension [None]
  - Constipation [None]
  - Ocular hyperaemia [None]
  - Eye pruritus [None]
  - Urine output decreased [None]

NARRATIVE: CASE EVENT DATE: 20180116
